FAERS Safety Report 18938115 (Version 1)
Quarter: 2021Q1

REPORT INFORMATION
  Report Type: Report from Study
  Country: US (occurrence: US)
  Receive Date: 20210224
  Receipt Date: 20210224
  Transmission Date: 20210420
  Serious: Yes (Other)
  Sender: FDA-Public Use
  Company Number: US-MYLANLABS-2021M1011300

PATIENT
  Sex: Female

DRUGS (2)
  1. GLATIRAMER ACETATE INJECTION [Suspect]
     Active Substance: GLATIRAMER ACETATE
     Indication: MULTIPLE SCLEROSIS
     Dosage: 40 MILLIGRAM, 3XW
     Route: 065
  2. WHISPERJECT? AUTOINJECTOR [Suspect]
     Active Substance: DEVICE
     Indication: MULTIPLE SCLEROSIS
     Dosage: UNK

REACTIONS (4)
  - Device issue [Unknown]
  - Device leakage [Unknown]
  - Multiple sclerosis [Unknown]
  - Memory impairment [Unknown]
